FAERS Safety Report 8130347-7 (Version None)
Quarter: 2012Q1

REPORT INFORMATION
  Report Type: 
  Country: None (occurrence: None)
  Receive Date: 20120210
  Receipt Date: 20120206
  Transmission Date: 20120608
  Serious: Yes (Hospitalization)
  Sender: FDA-Public Use
  Company Number: PHEH2012US003311

PATIENT
  Sex: Female

DRUGS (6)
  1. ASPIRIN [Concomitant]
  2. KEPPRA [Concomitant]
  3. AFINITOR [Suspect]
     Indication: ASTROCYTOMA, LOW GRADE
     Dosage: 5 MG, DAILY
     Route: 048
     Dates: start: 20110823
  4. L-CARNITINE [Concomitant]
  5. DEPAKOTE [Concomitant]
  6. NAPROXEN (ALEVE) [Concomitant]

REACTIONS (2)
  - GASTROINTESTINAL MOTILITY DISORDER [None]
  - PLATELET COUNT DECREASED [None]
